FAERS Safety Report 21780154 (Version 1)
Quarter: 2022Q4

REPORT INFORMATION
  Report Type: Other
  Country: None (occurrence: CN)
  Receive Date: 20221226
  Receipt Date: 20221226
  Transmission Date: 20230113
  Serious: Yes (Hospitalization)
  Sender: FDA-Public Use
  Company Number: CN-Jiangsu Hengrui Medicine Co., Ltd.-2136180

PATIENT
  Age: 70 Year
  Sex: Female
  Weight: 42 kg

DRUGS (4)
  1. OXALIPLATIN [Suspect]
     Active Substance: OXALIPLATIN
     Indication: Rectal cancer
     Route: 041
     Dates: start: 20221001, end: 20221001
  2. FLUOROURACIL [Suspect]
     Active Substance: FLUOROURACIL
     Route: 017
     Dates: start: 20221001, end: 20221001
  3. SODIUM CHLORIDE [Concomitant]
     Active Substance: SODIUM CHLORIDE
     Route: 041
     Dates: start: 20221001, end: 20221001
  4. GLUCOSE (DEXTROSE MONOHYDRATE) [Concomitant]
     Active Substance: DEXTROSE MONOHYDRATE
     Route: 041
     Dates: start: 20221001, end: 20221001

REACTIONS (1)
  - Drug-induced liver injury [Recovering/Resolving]

NARRATIVE: CASE EVENT DATE: 20221003
